FAERS Safety Report 16473390 (Version 1)
Quarter: 2019Q2

REPORT INFORMATION
  Report Type: Spontaneous
  Country: BH (occurrence: BH)
  Receive Date: 20190625
  Receipt Date: 20190625
  Transmission Date: 20190711
  Serious: Yes (Hospitalization, Other)
  Sender: FDA-Public Use
  Company Number: BH-ELI_LILLY_AND_COMPANY-BH201906010989

PATIENT
  Sex: Female

DRUGS (3)
  1. FLUOXETINE HYDROCHLORIDE. [Suspect]
     Active Substance: FLUOXETINE HYDROCHLORIDE
     Dosage: 40 MG, DAILY
     Route: 065
  2. FLUOXETINE HYDROCHLORIDE. [Suspect]
     Active Substance: FLUOXETINE HYDROCHLORIDE
     Indication: PRODUCT USED FOR UNKNOWN INDICATION
     Dosage: 20 MG, DAILY
     Route: 065
     Dates: start: 201710
  3. BUPROPION. [Suspect]
     Active Substance: BUPROPION
     Indication: APATHY
     Dosage: 150 MG, DAILY
     Route: 065

REACTIONS (2)
  - Suicide attempt [Recovered/Resolved]
  - Apathy [Unknown]

NARRATIVE: CASE EVENT DATE: 201712
